FAERS Safety Report 6293878-0 (Version None)
Quarter: 2009Q3

REPORT INFORMATION
  Report Type: 
  Country: None (occurrence: None)
  Receive Date: 20090803
  Receipt Date: 20090724
  Transmission Date: 20100115
  Serious: No
  Sender: FDA-Public Use
  Company Number: GB-ASTRAZENECA-2009GB01314

PATIENT
  Age: 41 Year
  Sex: Male
  Weight: 110 kg

DRUGS (9)
  1. SEROQUEL XR [Suspect]
     Route: 048
     Dates: start: 20090601
  2. HALOPERIDOL [Concomitant]
  3. OLANZAPINE [Concomitant]
  4. RISPERIDONE [Concomitant]
  5. LITHIUM [Concomitant]
  6. DEPAKOTE [Concomitant]
  7. VITAMIN B COMPLEX CAP [Concomitant]
  8. MIRTAZAPINE [Concomitant]
  9. ZOPICLONE [Concomitant]

REACTIONS (4)
  - NIGHTMARE [None]
  - PARANOIA [None]
  - SLEEP DISORDER [None]
  - VISUAL IMPAIRMENT [None]
